FAERS Safety Report 4359172-X (Version None)
Quarter: 2004Q2

REPORT INFORMATION
  Report Type: 
  Country: None (occurrence: None)
  Receive Date: 20040517
  Receipt Date: 20040517
  Transmission Date: 20050107
  Serious: Yes (Hospitalization)
  Sender: FDA-Public Use
  Company Number: None

PATIENT
  Age: 81 Year
  Sex: Male

DRUGS (6)
  1. PERGOLIDE MESYLATE [Suspect]
     Indication: PARKINSON'S DISEASE
     Dosage: 0.75 MG Q AM AND Q PM
     Dates: start: 19990401
  2. METOPROLOL [Concomitant]
  3. NITROGLYCERIN [Concomitant]
  4. FOSINOPRIL SODIUM [Concomitant]
  5. ACIPHEX [Concomitant]
  6. MAXZIDE [Concomitant]

REACTIONS (1)
  - HALLUCINATION, VISUAL [None]
